FAERS Safety Report 18860420 (Version 1)
Quarter: 2021Q1

REPORT INFORMATION
  Report Type: Spontaneous
  Country: FR (occurrence: FR)
  Receive Date: 20210208
  Receipt Date: 20210208
  Transmission Date: 20210420
  Serious: Yes (Other)
  Sender: FDA-Public Use
  Company Number: FR-MYLANLABS-2021M1005830

PATIENT
  Age: 72 Year
  Sex: Female

DRUGS (1)
  1. QUETIAPIN ?MYLAN? [Suspect]
     Active Substance: QUETIAPINE
     Indication: DEPRESSION
     Dosage: 300 MILLIGRAM, IN EVENING

REACTIONS (6)
  - Anxiety [Unknown]
  - Somnolence [Unknown]
  - Increased appetite [Unknown]
  - Suicidal ideation [Unknown]
  - Weight increased [Unknown]
  - Depressed mood [Unknown]
